FAERS Safety Report 9104574 (Version 1)
Quarter: 2013Q1

REPORT INFORMATION
  Report Type: Report from Study
  Country: GB (occurrence: GB)
  Receive Date: 20130220
  Receipt Date: 20130220
  Transmission Date: 20140127
  Serious: Yes (Death)
  Sender: FDA-Public Use
  Company Number: GB-ROCHE-1190013

PATIENT
  Sex: Female
  Weight: 76 kg

DRUGS (1)
  1. RITUXIMAB [Suspect]
     Indication: RHEUMATOID ARTHRITIS
     Route: 065
     Dates: start: 20060220

REACTIONS (4)
  - Pulmonary congestion [Fatal]
  - Pulmonary oedema [Fatal]
  - Viral myocarditis [Fatal]
  - Overdose [Fatal]
